FAERS Safety Report 6172180-1 (Version None)
Quarter: 2009Q2

REPORT INFORMATION
  Report Type: 
  Country: None (occurrence: None)
  Receive Date: 20090429
  Receipt Date: 20080520
  Transmission Date: 20091009
  Serious: No
  Sender: FDA-Public Use
  Company Number: A0687186A

PATIENT
  Age: 34 Year
  Sex: Female
  Weight: 51.8 kg

DRUGS (2)
  1. ZOFRAN [Suspect]
     Indication: PROPHYLAXIS OF NAUSEA AND VOMITING
     Dosage: 8MG PER DAY
     Route: 048
     Dates: start: 20070730
  2. VITAMIN TAB [Concomitant]
     Route: 048
     Dates: start: 20070716

REACTIONS (4)
  - DRUG EXPOSURE DURING PREGNANCY [None]
  - DRUG INEFFECTIVE [None]
  - LIVE BIRTH [None]
  - NAUSEA [None]
